FAERS Safety Report 5273272-1 (Version None)
Quarter: 2007Q1

REPORT INFORMATION
  Report Type: 
  Country: None (occurrence: None)
  Receive Date: 20070319
  Receipt Date: 20070301
  Transmission Date: 20070707
  Serious: Yes (Other)
  Sender: FDA-Public Use
  Company Number: 236478

PATIENT
  Age: 61 Year
  Sex: Female
  Weight: 60 kg

DRUGS (2)
  1. HERCEPTIN [Suspect]
     Indication: BREAST CANCER
     Dosage: 300 MG, QD, INTRAVENOUS
     Route: 042
     Dates: start: 20060406, end: 20061109
  2. PACLITAXEL [Concomitant]

REACTIONS (2)
  - BRADYKINESIA [None]
  - DYSARTHRIA [None]
